FAERS Safety Report 8056239-X (Version None)
Quarter: 2012Q1

REPORT INFORMATION
  Report Type: 
  Country: None (occurrence: None)
  Receive Date: 20120119
  Receipt Date: 20120113
  Transmission Date: 20120608
  Serious: Yes (Hospitalization)
  Sender: FDA-Public Use
  Company Number: US-TEVA-2011005810

PATIENT
  Sex: Female
  Weight: 46.762 kg

DRUGS (11)
  1. INTERFERON BETA NOS [Concomitant]
  2. OMEPRAZOLE [Concomitant]
  3. AMANTADINE HCL [Concomitant]
  4. DIPHENHYDRAMINE HCL [Concomitant]
  5. NUVIGIL [Suspect]
     Indication: MULTIPLE SCLEROSIS
     Route: 048
     Dates: start: 20110714, end: 20110101
  6. CLONAZEPAM [Concomitant]
  7. PREGABALIN [Concomitant]
  8. ROPINIROLE HYDROCHLORIDE [Concomitant]
  9. MULTI-VITAMIN [Concomitant]
  10. FISH OIL [Concomitant]
  11. TYLENOL PM [Concomitant]

REACTIONS (4)
  - ASTHENIA [None]
  - DIZZINESS [None]
  - VOMITING [None]
  - HYPONATRAEMIA [None]
